FAERS Safety Report 5797319-9 (Version None)
Quarter: 2008Q3

REPORT INFORMATION
  Report Type: 
  Country: None (occurrence: None)
  Receive Date: 20080701
  Receipt Date: 20080623
  Transmission Date: 20090109
  Serious: Yes (Hospitalization)
  Sender: FDA-Public Use
  Company Number: FR-PFIZER INC-2008053181

PATIENT
  Age: 31 Year
  Sex: Male

DRUGS (18)
  1. ZITHROMAX [Suspect]
  2. PREDNISONE [Suspect]
  3. METRONIDAZOLE TABLET [Suspect]
  4. PROGRAF [Suspect]
  5. BACTRIM [Suspect]
  6. ACTONEL [Suspect]
  7. DEROXAT [Suspect]
  8. OMEPRAZOLE [Suspect]
  9. CELLCEPT [Concomitant]
  10. MONTELUKAST SODIUM [Concomitant]
  11. IDEOS [Concomitant]
  12. CREON [Concomitant]
  13. TOCO [Concomitant]
  14. DOMPERIDONE [Concomitant]
  15. LIPANTHYL [Concomitant]
  16. INSULATARD [Concomitant]
  17. NOVORAPID [Concomitant]
  18. EVEROLIMUS [Concomitant]

REACTIONS (2)
  - SCOTOMA [None]
  - VISUAL ACUITY REDUCED [None]
